FAERS Safety Report 11427232 (Version 6)
Quarter: 2022Q1

REPORT INFORMATION
  Report Type: Report from Study
  Country: US (occurrence: US)
  Receive Date: 20150827
  Receipt Date: 20220215
  Transmission Date: 20220423
  Serious: Yes (Hospitalization, Other)
  Sender: FDA-Public Use
  Company Number: US-SA-2014SA109088

PATIENT
  Age: 56 Year
  Sex: Female
  Weight: 84.8 kg

DRUGS (68)
  1. AGALSIDASE BETA [Suspect]
     Active Substance: AGALSIDASE BETA
     Indication: Fabry^s disease
     Dosage: 80 MG, QOW
     Route: 041
     Dates: start: 20061010
  2. AGALSIDASE BETA [Suspect]
     Active Substance: AGALSIDASE BETA
     Dosage: 80 MG, QOW
     Route: 041
     Dates: start: 20160212
  3. AGALSIDASE BETA [Suspect]
     Active Substance: AGALSIDASE BETA
     Dosage: 09 MG/KG, QOW
     Route: 041
     Dates: start: 20161202
  4. DIPHENHYDRAMINE HYDROCHLORIDE [Suspect]
     Active Substance: DIPHENHYDRAMINE HYDROCHLORIDE
     Dosage: UNK UNK,UNK
     Route: 065
  5. MECLIZINE [Suspect]
     Active Substance: MECLIZINE HYDROCHLORIDE
     Dosage: UNK
     Dates: end: 2021
  6. SOLU-MEDROL [Concomitant]
     Active Substance: METHYLPREDNISOLONE SODIUM SUCCINATE
     Dosage: UNK
     Dates: start: 20061010
  7. ACETAMINOPHEN [Concomitant]
     Active Substance: ACETAMINOPHEN
  8. ACETAMINOPHEN [Concomitant]
     Active Substance: ACETAMINOPHEN
  9. HEPARIN [Concomitant]
     Active Substance: HEPARIN SODIUM
  10. HEPARIN [Concomitant]
     Active Substance: HEPARIN SODIUM
  11. SODIUM CHLORIDE [Concomitant]
     Active Substance: SODIUM CHLORIDE
  12. SODIUM CHLORIDE [Concomitant]
     Active Substance: SODIUM CHLORIDE
  13. ONDANSETRON [Concomitant]
     Active Substance: ONDANSETRON
  14. ONDANSETRON [Concomitant]
     Active Substance: ONDANSETRON
  15. EPINEPHRINE [Concomitant]
     Active Substance: EPINEPHRINE
  16. EPINEPHRINE [Concomitant]
     Active Substance: EPINEPHRINE
  17. STERILE WATER [Concomitant]
     Active Substance: WATER
  18. STERILE WATER [Concomitant]
     Active Substance: WATER
  19. SOLU-CORTEF [Concomitant]
     Active Substance: HYDROCORTISONE SODIUM SUCCINATE
  20. SOLU-CORTEF [Concomitant]
     Active Substance: HYDROCORTISONE SODIUM SUCCINATE
  21. TRAMADOL [Concomitant]
     Active Substance: TRAMADOL
  22. TRAMADOL [Concomitant]
     Active Substance: TRAMADOL
  23. ALBUTEROL [Concomitant]
     Active Substance: ALBUTEROL
  24. ALBUTEROL [Concomitant]
     Active Substance: ALBUTEROL
  25. GABAPENTIN [Concomitant]
     Active Substance: GABAPENTIN
  26. GABAPENTIN [Concomitant]
     Active Substance: GABAPENTIN
  27. FLUBLOK [Concomitant]
     Active Substance: INFLUENZA A VIRUS A/CALIFORNIA/7/2009 (H1N1) RECOMBINANT HEMAGGLUTININ ANTIGEN\INFLUENZA A VIRUS A/V
     Indication: Immunisation
  28. FLUBLOK [Concomitant]
     Active Substance: INFLUENZA A VIRUS A/CALIFORNIA/7/2009 (H1N1) RECOMBINANT HEMAGGLUTININ ANTIGEN\INFLUENZA A VIRUS A/V
  29. AMITRIPTYLINE [Concomitant]
     Active Substance: AMITRIPTYLINE
  30. AMITRIPTYLINE [Concomitant]
     Active Substance: AMITRIPTYLINE
  31. ASPIRIN [Concomitant]
     Active Substance: ASPIRIN
  32. ASPIRIN [Concomitant]
     Active Substance: ASPIRIN
  33. LORATADINE [Concomitant]
     Active Substance: LORATADINE
  34. LORATADINE [Concomitant]
     Active Substance: LORATADINE
  35. PRILOSEC [Concomitant]
     Active Substance: OMEPRAZOLE MAGNESIUM
  36. PRILOSEC [Concomitant]
     Active Substance: OMEPRAZOLE MAGNESIUM
  37. TRAZODONE [Concomitant]
     Active Substance: TRAZODONE HYDROCHLORIDE
  38. TRAZODONE [Concomitant]
     Active Substance: TRAZODONE HYDROCHLORIDE
  39. DYAZIDE [Concomitant]
     Active Substance: HYDROCHLOROTHIAZIDE\TRIAMTERENE
  40. DYAZIDE [Concomitant]
     Active Substance: HYDROCHLOROTHIAZIDE\TRIAMTERENE
  41. HYDROCORTISONE [Concomitant]
     Active Substance: HYDROCORTISONE
  42. HYDROCORTISONE [Concomitant]
     Active Substance: HYDROCORTISONE
  43. SIMVASTATIN [Concomitant]
     Active Substance: SIMVASTATIN
  44. SIMVASTATIN [Concomitant]
     Active Substance: SIMVASTATIN
  45. ARTIFICIAL TEARS [PROPYLENE GLYCOL] [Concomitant]
  46. CYMBALTA [Concomitant]
     Active Substance: DULOXETINE HYDROCHLORIDE
  47. CYMBALTA [Concomitant]
     Active Substance: DULOXETINE HYDROCHLORIDE
  48. CYTOMEL [Concomitant]
     Active Substance: LIOTHYRONINE SODIUM
  49. CYTOMEL [Concomitant]
     Active Substance: LIOTHYRONINE SODIUM
  50. WELLBUTRIN [Concomitant]
     Active Substance: BUPROPION HYDROCHLORIDE
  51. WELLBUTRIN [Concomitant]
     Active Substance: BUPROPION HYDROCHLORIDE
  52. CALCIUM CARBONATE\VITAMIN D [Concomitant]
     Active Substance: CALCIUM CARBONATE\VITAMIN D
  53. CALCIUM CARBONATE\VITAMIN D [Concomitant]
     Active Substance: CALCIUM CARBONATE\VITAMIN D
  54. MOMETASONE FUROATE [Concomitant]
     Active Substance: MOMETASONE FUROATE
  55. MIRALAX [Concomitant]
     Active Substance: POLYETHYLENE GLYCOL 3350
  56. MIRALAX [Concomitant]
     Active Substance: POLYETHYLENE GLYCOL 3350
  57. AZELASTINE [Concomitant]
     Active Substance: AZELASTINE
  58. AZELASTINE [Concomitant]
     Active Substance: AZELASTINE
  59. VITAMINS [Concomitant]
     Active Substance: VITAMINS
  60. VITAMINS [Concomitant]
     Active Substance: VITAMINS
  61. DIPHENHYDRAMINE [Concomitant]
     Active Substance: DIPHENHYDRAMINE
  62. DIPHENHYDRAMINE [Concomitant]
     Active Substance: DIPHENHYDRAMINE
  63. ARTIFICIAL TEARS (POLYVINYL ALCOHOL) [Concomitant]
     Active Substance: POLYVINYL ALCOHOL
  64. ARTIFICIAL TEARS (POLYVINYL ALCOHOL) [Concomitant]
     Active Substance: POLYVINYL ALCOHOL
  65. CALCIUM [Concomitant]
     Active Substance: CALCIUM
  66. FLONASE [Concomitant]
     Active Substance: FLUTICASONE PROPIONATE
  67. FLONASE [Concomitant]
     Active Substance: FLUTICASONE PROPIONATE
  68. MECLIZINE [Concomitant]
     Active Substance: MECLIZINE HYDROCHLORIDE

REACTIONS (21)
  - Hydrocephalus [Unknown]
  - Hospitalisation [Unknown]
  - Surgery [Unknown]
  - Skin lesion [Unknown]
  - Fibromyalgia [Unknown]
  - Cold sweat [Unknown]
  - Hyperhidrosis [Unknown]
  - Pain [Unknown]
  - Headache [Recovering/Resolving]
  - Burning sensation [Unknown]
  - Vulval disorder [Unknown]
  - Joint swelling [Unknown]
  - Skin haemorrhage [Unknown]
  - Pineal gland cyst [Unknown]
  - Hypersomnia [Not Recovered/Not Resolved]
  - Gastrooesophageal reflux disease [Unknown]
  - Gait disturbance [Unknown]
  - Sleep apnoea syndrome [Not Recovered/Not Resolved]
  - Fall [Unknown]
  - Erythema [Unknown]
  - Fatigue [Not Recovered/Not Resolved]

NARRATIVE: CASE EVENT DATE: 20061010
